FAERS Safety Report 8928813 (Version 1)
Quarter: 2012Q4

REPORT INFORMATION
  Report Type: Spontaneous
  Country: US (occurrence: None)
  Receive Date: 20121126
  Receipt Date: 20121126
  Transmission Date: 20130627
  Serious: Yes (Hospitalization)
  Sender: FDA-Public Use
  Company Number: None

PATIENT
  Age: 85 Year
  Sex: Female
  Weight: 56.9 kg

DRUGS (4)
  1. DABIGATRAN 150MG BOEHRINGER INGELHEIM [Suspect]
     Indication: ATRIAL FIBRILLATION
     Route: 048
     Dates: start: 20110825, end: 20120709
  2. PRADAXA [Concomitant]
  3. FLUOXETINE [Concomitant]
  4. NADOLOL [Concomitant]

REACTIONS (2)
  - Rectal haemorrhage [None]
  - Anaemia [None]
